FAERS Safety Report 20718980 (Version 1)
Quarter: 2022Q2

REPORT INFORMATION
  Report Type: Spontaneous
  Country: FR (occurrence: FR)
  Receive Date: 20220418
  Receipt Date: 20220418
  Transmission Date: 20220721
  Serious: Yes (Congenital Anomaly, Other)
  Sender: FDA-Public Use
  Company Number: FR-ABBVIE-21K-056-3989794-00

PATIENT
  Sex: Female
  Weight: 3.12 kg

DRUGS (2)
  1. VALPROATE SODIUM [Suspect]
     Active Substance: VALPROATE SODIUM
     Indication: Maternal exposure timing unspecified
     Route: 064
     Dates: start: 19930503
  2. PHENYTOIN [Concomitant]
     Active Substance: PHENYTOIN
     Indication: Product used for unknown indication

REACTIONS (11)
  - Dysmorphism [Unknown]
  - Talipes [Unknown]
  - Congenital musculoskeletal disorder of limbs [Unknown]
  - Hypotonia [Unknown]
  - Arrhythmia [Unknown]
  - Gastrooesophageal reflux disease [Unknown]
  - Foetal exposure during pregnancy [Unknown]
  - Congenital genital malformation [Unknown]
  - Supraventricular extrasystoles [Unknown]
  - Haemostasis [Unknown]
  - Atrial septal defect [Unknown]
